FAERS Safety Report 25903735 (Version 1)
Quarter: 2025Q4

REPORT INFORMATION
  Report Type: Spontaneous
  Country: EU (occurrence: EU)
  Receive Date: 20251010
  Receipt Date: 20251010
  Transmission Date: 20260117
  Serious: Yes (Hospitalization)
  Sender: ACCORD
  Company Number: None

PATIENT
  Age: 14 Year
  Sex: Male
  Weight: 57 kg

DRUGS (17)
  1. METHOTREXATE [Suspect]
     Active Substance: METHOTREXATE
     Indication: Acute myeloid leukaemia
     Dates: start: 20250804, end: 20250804
  2. MITOXANTRONE [Suspect]
     Active Substance: MITOXANTRONE HYDROCHLORIDE
     Indication: Acute myeloid leukaemia
     Dates: start: 20250804, end: 20250806
  3. CYTARABINE [Suspect]
     Active Substance: CYTARABINE
     Indication: Acute myeloid leukaemia
     Dates: start: 20250804, end: 20250811
  4. HYDROCORTISONE [Suspect]
     Active Substance: HYDROCORTISONE
     Indication: Acute myeloid leukaemia
     Dosage: STRENGTH: 100 MG, INJECTABLE PREPARATION
     Dates: start: 20250804, end: 20250804
  5. HYDROCORTISONE [Concomitant]
     Active Substance: HYDROCORTISONE
  6. ACETAMINOPHEN [Concomitant]
     Active Substance: ACETAMINOPHEN
  7. Spasfon [Concomitant]
  8. POLYETHYLENE GLYCOLS [Concomitant]
     Active Substance: POLYETHYLENE GLYCOLS
  9. ONDANSETRON [Concomitant]
     Active Substance: ONDANSETRON
  10. VALACYCLOVIR HYDROCHLORIDE [Concomitant]
     Active Substance: VALACYCLOVIR HYDROCHLORIDE
  11. BACTRIM [Concomitant]
     Active Substance: SULFAMETHOXAZOLE\TRIMETHOPRIM
  12. POSACONAZOLE [Concomitant]
     Active Substance: POSACONAZOLE
  13. AMLODIPINE [Concomitant]
     Active Substance: AMLODIPINE BESYLATE
  14. HYDROCORTISONE [Suspect]
     Active Substance: HYDROCORTISONE
     Indication: Acute myeloid leukaemia
     Dosage: STRENGTH: 100 MG, INJECTABLE PREPARATION
     Dates: start: 20250807, end: 20250807
  15. CYTARABINE [Suspect]
     Active Substance: CYTARABINE
     Indication: Acute myeloid leukaemia
     Dates: start: 20250804, end: 20250804
  16. CYTARABINE [Suspect]
     Active Substance: CYTARABINE
     Indication: Acute myeloid leukaemia
     Dates: start: 20250807, end: 20250807
  17. METHOTREXATE [Suspect]
     Active Substance: METHOTREXATE
     Indication: Acute myeloid leukaemia
     Dates: start: 20250807, end: 20250807

REACTIONS (2)
  - Headache [Recovered/Resolved]
  - Systemic inflammatory response syndrome [Recovered/Resolved]

NARRATIVE: CASE EVENT DATE: 20250818
